FAERS Safety Report 16876192 (Version 3)
Quarter: 2019Q4

REPORT INFORMATION
  Report Type: Spontaneous
  Country: US (occurrence: US)
  Receive Date: 20191002
  Receipt Date: 20191218
  Transmission Date: 20200122
  Serious: No
  Sender: FDA-Public Use
  Company Number: US-GW PHARMA-201909USGW3285

PATIENT

DRUGS (2)
  1. VIMPAT [Concomitant]
     Active Substance: LACOSAMIDE
     Indication: PRODUCT USED FOR UNKNOWN INDICATION
     Dosage: UNK
     Route: 065
     Dates: end: 2019
  2. EPIDIOLEX [Suspect]
     Active Substance: CANNABIDIOL
     Indication: LENNOX-GASTAUT SYNDROME
     Dosage: 4.97 MG/KG/DAY, 40 MILLIGRAM, BID
     Route: 048
     Dates: start: 20190905, end: 20190907

REACTIONS (4)
  - Product dose omission [Unknown]
  - Vomiting [Recovered/Resolved]
  - Seizure [Unknown]
  - Seizure cluster [Unknown]

NARRATIVE: CASE EVENT DATE: 2019
